FAERS Safety Report 10880692 (Version 1)
Quarter: 2015Q1

REPORT INFORMATION
  Report Type: Spontaneous
  Country: US (occurrence: US)
  Receive Date: 20150303
  Receipt Date: 20150303
  Transmission Date: 20150721
  Serious: Yes (Other)
  Sender: FDA-Public Use
  Company Number: US-ASTRAZENECA-2015SE18478

PATIENT
  Age: 90 Year
  Sex: Male
  Weight: 68.9 kg

DRUGS (17)
  1. CALCIUM [Concomitant]
     Active Substance: CALCIUM
     Indication: GENERAL PHYSICAL HEALTH DETERIORATION
     Dosage: EVERY MORNING, WITHIN THE LAST 1-2 YEARS
     Route: 048
  2. SYMBICORT [Suspect]
     Active Substance: BUDESONIDE\FORMOTEROL FUMARATE DIHYDRATE
     Indication: AIRWAY SECRETION CLEARANCE THERAPY
     Dosage: 80/4.5, 1 PUFF DAILY
     Route: 055
     Dates: start: 20150119, end: 20150209
  3. SPIRIVA [Concomitant]
     Active Substance: TIOTROPIUM BROMIDE MONOHYDRATE
     Indication: CHRONIC OBSTRUCTIVE PULMONARY DISEASE
     Route: 055
     Dates: start: 201405
  4. CRESTOR [Suspect]
     Active Substance: ROSUVASTATIN CALCIUM
     Indication: BLOOD CHOLESTEROL
     Dosage: 20 MG DAILY, STARTED 10-12 YEARS AGO
     Route: 048
     Dates: end: 2013
  5. SYMBICORT [Suspect]
     Active Substance: BUDESONIDE\FORMOTEROL FUMARATE DIHYDRATE
     Indication: CHRONIC OBSTRUCTIVE PULMONARY DISEASE
     Dosage: 80/4.5, 1 PUFF DAILY
     Route: 055
     Dates: start: 20150119, end: 20150209
  6. SYMBICORT [Suspect]
     Active Substance: BUDESONIDE\FORMOTEROL FUMARATE DIHYDRATE
     Indication: SECRETION DISCHARGE
     Dosage: 80/4.5, 1 PUFF DAILY
     Route: 055
     Dates: start: 20150119, end: 20150209
  7. CQ10 [Concomitant]
     Active Substance: UBIDECARENONE
     Indication: CARDIOVASCULAR EVENT PROPHYLAXIS
     Route: 048
  8. CHONDROITIN SULFATE (BOVINE)\GLUCOSAMINE SULFATE [Concomitant]
     Active Substance: CHONDROITIN SULFATE (BOVINE)\GLUCOSAMINE SULFATE
     Indication: CHONDROPATHY
     Dosage: TWO TIMES A DAY, GLUCOSAMINE WAS 1500 MG AND CHONDROITIN WAS 1200 MG, BEGAN 25-30 YEARS AGO
     Route: 048
  9. FOLBIC [Concomitant]
     Active Substance: CYANOCOBALAMIN\FOLIC ACID\PYRIDOXINE
     Indication: CARDIOVASCULAR EVENT PROPHYLAXIS
     Dosage: 1 TABLET IN THE MORNING AND 2 TABLETS AT BEDTIME
     Route: 048
     Dates: start: 2003
  10. CALCIUM [Concomitant]
     Active Substance: CALCIUM
     Indication: NERVOUS SYSTEM DISORDER
     Dosage: EVERY MORNING, WITHIN THE LAST 1-2 YEARS
     Route: 048
  11. ASPIRIN. [Concomitant]
     Active Substance: ASPIRIN
     Indication: CARDIOVASCULAR EVENT PROPHYLAXIS
     Dosage: 81 MG, AT NIGHT SINCE 20-30 YEARS
     Route: 048
  12. SPIRIVA [Concomitant]
     Active Substance: TIOTROPIUM BROMIDE MONOHYDRATE
     Indication: TOTAL LUNG CAPACITY DECREASED
     Route: 055
     Dates: start: 201405
  13. TRIPLE OMEGA [Concomitant]
     Indication: CARDIOVASCULAR EVENT PROPHYLAXIS
     Route: 048
  14. VITAMIN B12 [Concomitant]
     Active Substance: CYANOCOBALAMIN
     Indication: VITAMIN B12 DEFICIENCY
     Dosage: 5000 MCG, EVERY MORNING WITHIN THE LAST 1-2 YEARS
     Route: 048
  15. MULTIVITAMIN [Concomitant]
     Active Substance: VITAMINS
     Indication: VITAMIN SUPPLEMENTATION
     Route: 048
  16. VITAMIN D [Concomitant]
     Active Substance: CHOLECALCIFEROL
     Indication: GENERAL PHYSICAL HEALTH DETERIORATION
     Dosage: 1000 IU, EVERY MORNING WITHIN THE LAST 1-2 YEARS
     Route: 048
  17. CALCIUM [Concomitant]
     Active Substance: CALCIUM
     Indication: ASTHENIA
     Dosage: EVERY MORNING, WITHIN THE LAST 1-2 YEARS
     Route: 048

REACTIONS (5)
  - Cataract [Unknown]
  - Intentional product misuse [Unknown]
  - Mental status changes [Unknown]
  - Visual acuity reduced [Unknown]
  - Secretion discharge [Unknown]

NARRATIVE: CASE EVENT DATE: 2012
